FAERS Safety Report 7676823-2 (Version None)
Quarter: 2011Q3

REPORT INFORMATION
  Report Type: 
  Country: None (occurrence: None)
  Receive Date: 20110811
  Receipt Date: 20110801
  Transmission Date: 20111222
  Serious: Yes (Life-Threatening, Hospitalization)
  Sender: FDA-Public Use
  Company Number: US-JNJFOC-20110803651

PATIENT
  Sex: Female
  Weight: 66.23 kg

DRUGS (2)
  1. LEVAQUIN [Suspect]
     Indication: PRODUCT USED FOR UNKNOWN INDICATION
     Route: 048
     Dates: start: 20101029, end: 20101029
  2. ALL OTHER THERAPEUTIC DRUG [Concomitant]
     Route: 065
     Dates: end: 20101013

REACTIONS (3)
  - INTENTIONAL DRUG MISUSE [None]
  - WRONG DRUG ADMINISTERED [None]
  - DRUG HYPERSENSITIVITY [None]
